FAERS Safety Report 5286958-X (Version None)
Quarter: 2007Q1

REPORT INFORMATION
  Report Type: 
  Country: None (occurrence: None)
  Receive Date: 20070329
  Receipt Date: 20070313
  Transmission Date: 20070707
  Serious: Yes (Life-Threatening, Hospitalization)
  Sender: FDA-Public Use
  Company Number: DSA_29578_2007

PATIENT
  Age: 25 Year
  Sex: Female

DRUGS (3)
  1. LORAZEPAM [Suspect]
     Dosage: 25 MG ONCE PO
     Route: 048
     Dates: start: 20070313, end: 20070313
  2. TRIMIPRAMINE MALEATE [Suspect]
     Dosage: 2000 MG ONCE PO
     Route: 048
     Dates: start: 20070313, end: 20070313
  3. TRUXAL /00012101/ [Suspect]
     Dosage: 2000 MG ONCE PO
     Route: 048
     Dates: start: 20070313, end: 20070313

REACTIONS (4)
  - MULTIPLE DRUG OVERDOSE [None]
  - SOPOR [None]
  - SUICIDE ATTEMPT [None]
  - TACHYCARDIA [None]
